FAERS Safety Report 4533914-2 (Version None)
Quarter: 2004Q4

REPORT INFORMATION
  Report Type: 
  Country: None (occurrence: None)
  Receive Date: 20041210
  Receipt Date: 20040519
  Transmission Date: 20050328
  Serious: Yes (Hospitalization)
  Sender: FDA-Public Use
  Company Number: A03200401629

PATIENT
  Age: 57 Year
  Sex: Female
  Weight: 75.3 kg

DRUGS (2)
  1. ELOXATIN [Suspect]
     Indication: COLON CANCER METASTATIC
     Dosage: 150 MG OTHER - INTRAVENOUS NOS
     Route: 042
  2. BEVACIZUMAB [Concomitant]

REACTIONS (6)
  - DYSPNOEA [None]
  - NAUSEA [None]
  - PARAESTHESIA [None]
  - PYREXIA [None]
  - THROAT TIGHTNESS [None]
  - VOMITING [None]
